FAERS Safety Report 7600011-9 (Version None)
Quarter: 2011Q2

REPORT INFORMATION
  Report Type: 
  Country: None (occurrence: None)
  Receive Date: 20110629
  Receipt Date: 20110613
  Transmission Date: 20111010
  Serious: Yes (Hospitalization, Other)
  Sender: FDA-Public Use
  Company Number: 2009S1006344

PATIENT
  Age: 70 Year
  Sex: Female
  Weight: 85.7298 kg

DRUGS (11)
  1. NEURONTIN [Concomitant]
  2. ZOCOR [Concomitant]
  3. SODIUM PHOSPHATE MONOBASIC MONOHYDRATE AND NAPO4 DIBASIC ANHYDROUS [Suspect]
     Indication: COLONOSCOPY
     Dosage: 45 ML;X1;PO
     Route: 048
     Dates: start: 20081116, end: 20081116
  4. ASPIRIN [Concomitant]
  5. LASIX /0032601/ [Concomitant]
  6. HUMALOG [Concomitant]
  7. ATENOLOL [Concomitant]
  8. HYZAAR [Concomitant]
  9. ZETIA [Concomitant]
  10. ALLEGRA [Concomitant]
  11. NEXIUM [Concomitant]

REACTIONS (15)
  - ABDOMINAL PAIN [None]
  - DIVERTICULUM [None]
  - RENAL FAILURE ACUTE [None]
  - MENTAL STATUS CHANGES [None]
  - COLITIS [None]
  - ILEUS [None]
  - DIARRHOEA [None]
  - HEADACHE [None]
  - DEHYDRATION [None]
  - ABDOMINAL DISTENSION [None]
  - NAUSEA [None]
  - SMALL INTESTINAL OBSTRUCTION [None]
  - DIZZINESS [None]
  - CLOSTRIDIUM DIFFICILE COLITIS [None]
  - PAIN [None]
